FAERS Safety Report 16126864 (Version 2)
Quarter: 2019Q4

REPORT INFORMATION
  Report Type: Spontaneous
  Country: FR (occurrence: FR)
  Receive Date: 20190328
  Receipt Date: 20191010
  Transmission Date: 20200122
  Serious: Yes (Hospitalization)
  Sender: FDA-Public Use
  Company Number: FR-ZYDUS-034932

PATIENT
  Age: 54 Year
  Sex: Female
  Weight: 56 kg

DRUGS (17)
  1. PANTOPRAZOLE [Suspect]
     Active Substance: PANTOPRAZOLE
     Indication: GASTROOESOPHAGEAL REFLUX DISEASE
     Route: 048
  2. ASCORBIC ACID/BIOTIN/COCARBOXYLASE/COLECALCIFEROL/CYANOCOBALAMIN/DEXPANTHENOL/FOLIC ACID/NICOTINAMID [Concomitant]
     Indication: PRODUCT USED FOR UNKNOWN INDICATION
     Route: 065
  3. ZOLPIDEM [Suspect]
     Active Substance: ZOLPIDEM TARTRATE
     Indication: INSOMNIA
     Route: 048
  4. ENOXAPARIN [Suspect]
     Active Substance: ENOXAPARIN
     Indication: THROMBOSIS PROPHYLAXIS
     Route: 059
  5. ENOXAPARIN [Suspect]
     Active Substance: ENOXAPARIN
     Indication: THROMBOSIS PROPHYLAXIS
     Route: 059
  6. AMOXICILLIN SODIUM/CLAVULANATE POTASSIUM [Suspect]
     Active Substance: AMOXICILLIN\CLAVULANATE POTASSIUM
     Indication: BACTERAEMIA
     Route: 041
     Dates: start: 20170131
  7. AMIKACIN. [Suspect]
     Active Substance: AMIKACIN
     Indication: BACTERAEMIA
     Route: 041
     Dates: start: 20170127, end: 20170130
  8. CEFTOBIPROL/CEFTOBIPROLBEDOCARIL/CEFTOBIPROLBEDOCARIL-NARTIUM [Suspect]
     Active Substance: CEFTOBIPROLE
     Indication: BACTERAEMIA
     Route: 041
     Dates: start: 20170127, end: 20170130
  9. PARACETAMOL [Suspect]
     Active Substance: ACETAMINOPHEN
     Indication: PAIN
     Route: 048
  10. TRAMADOL. [Suspect]
     Active Substance: TRAMADOL
     Indication: PAIN
     Route: 048
  11. NEFOPAM [Suspect]
     Active Substance: NEFOPAM
     Indication: PAIN
     Route: 041
     Dates: start: 20170127
  12. DAPTOMYCIN. [Suspect]
     Active Substance: DAPTOMYCIN
     Indication: BACTERAEMIA
     Route: 041
     Dates: start: 20170131
  13. COPPER GLUCONATE/CHROMYL CHLORIDE/IRON(II) GLUCONATE/POTASSIUM IODIDE/ZINC GLUCONATE/SODIUM MOLYBDAT [Concomitant]
     Indication: PRODUCT USED FOR UNKNOWN INDICATION
     Route: 065
  14. GLUCOSE 1-PHOSPHATE DISODIUM [Concomitant]
     Active Substance: .ALPHA.-GLUCOSE-1-PHOSPHATE
     Indication: PRODUCT USED FOR UNKNOWN INDICATION
     Route: 065
  15. ALANINE/ARGININE/GLUCOSE MONOHYDRATE/GLYCINE/HISTIDINE/HUILE DE SOJA RAFFINEE/HUILE D^OLIVE RAFFINEE [Concomitant]
     Indication: PRODUCT USED FOR UNKNOWN INDICATION
     Route: 065
  16. VENLAFAXINE/VENLAFAXINE HYDROCHLORIDE [Suspect]
     Active Substance: VENLAFAXINE HYDROCHLORIDE
     Indication: MAJOR DEPRESSION
     Dosage: 37.5 MG IN THE MORNING AND 75 MG IN THE EVENING
     Route: 048
  17. OXYCODONE [Suspect]
     Active Substance: OXYCODONE
     Indication: PAIN
     Route: 048
     Dates: start: 20170127

REACTIONS (1)
  - Leukopenia [Recovered/Resolved]

NARRATIVE: CASE EVENT DATE: 20170214
